FAERS Safety Report 19098628 (Version 1)
Quarter: 2021Q2

REPORT INFORMATION
  Report Type: Report from Study
  Country: CO (occurrence: CO)
  Receive Date: 20210406
  Receipt Date: 20210406
  Transmission Date: 20210717
  Serious: Yes (Other)
  Sender: FDA-Public Use
  Company Number: CO-COLLEGIUM PHARMACEUTICAL, INC.-2021CGM00351

PATIENT
  Age: 82 Year
  Sex: Female

DRUGS (1)
  1. TAPENTADOL [Suspect]
     Active Substance: TAPENTADOL
     Indication: PAIN
     Dosage: 50 MG, 1X/DAY
     Route: 048
     Dates: start: 20210211

REACTIONS (8)
  - Hypersomnia [Unknown]
  - Depression [Unknown]
  - Therapy cessation [Unknown]
  - Headache [Unknown]
  - Nervousness [Unknown]
  - Dyspnoea [Unknown]
  - Parkinson^s disease [Unknown]
  - Disorientation [Unknown]
